FAERS Safety Report 6279199-0 (Version None)
Quarter: 2009Q3

REPORT INFORMATION
  Report Type: 
  Country: None (occurrence: None)
  Receive Date: 20090723
  Receipt Date: 20080730
  Transmission Date: 20100115
  Serious: No
  Sender: FDA-Public Use
  Company Number: US-AMGEN-KDL298407

PATIENT
  Sex: Male

DRUGS (4)
  1. PROCRIT [Suspect]
     Indication: RENAL FAILURE CHRONIC
     Dates: start: 20080601
  2. COREG [Concomitant]
  3. LISINOPRIL [Concomitant]
  4. CALCITRIOL [Concomitant]

REACTIONS (5)
  - ARTHRALGIA [None]
  - GROIN PAIN [None]
  - MUSCULOSKELETAL PAIN [None]
  - MYALGIA [None]
  - PAIN IN EXTREMITY [None]
